FAERS Safety Report 10784331 (Version 1)
Quarter: 2015Q1

REPORT INFORMATION
  Report Type: Spontaneous
  Country: US (occurrence: US)
  Receive Date: 20150211
  Receipt Date: 20150211
  Transmission Date: 20150721
  Serious: No
  Sender: FDA-Public Use
  Company Number: US-ASTRAZENECA-2015SE11187

PATIENT
  Age: 24198 Day
  Sex: Female
  Weight: 65.3 kg

DRUGS (4)
  1. LETRIZOLE [Concomitant]
     Dates: end: 20150111
  2. VITAMIN C [Concomitant]
     Active Substance: ASCORBIC ACID
     Route: 048
     Dates: start: 201412
  3. FASLODEX [Suspect]
     Active Substance: FULVESTRANT
     Indication: NEOPLASM MALIGNANT
     Dosage: MONTHLY
     Route: 030
     Dates: start: 201409
  4. MULTI VITAMIN [Concomitant]
     Active Substance: VITAMINS
     Indication: CHEMOTHERAPY
     Route: 048

REACTIONS (16)
  - Paraesthesia [Unknown]
  - Pruritus [Unknown]
  - Hypersensitivity [Unknown]
  - Skin burning sensation [Unknown]
  - Neck pain [Unknown]
  - Dyspnoea [Not Recovered/Not Resolved]
  - Formication [Not Recovered/Not Resolved]
  - Vulvovaginal pruritus [Unknown]
  - Dermatitis [Unknown]
  - Dizziness [Unknown]
  - Rash generalised [Unknown]
  - Skin exfoliation [Unknown]
  - Feeling abnormal [Unknown]
  - Eye swelling [Unknown]
  - Erythema [Unknown]
  - Malaise [Unknown]

NARRATIVE: CASE EVENT DATE: 201412
